FAERS Safety Report 4932879-9 (Version None)
Quarter: 2006Q1

REPORT INFORMATION
  Report Type: 
  Country: None (occurrence: None)
  Receive Date: 20060306
  Receipt Date: 20060220
  Transmission Date: 20060701
  Serious: Yes (Hospitalization)
  Sender: FDA-Public Use
  Company Number: GB-JNJFOC-20060200982

PATIENT
  Age: 51 Year
  Sex: Female

DRUGS (19)
  1. FENTANYL CITRATE [Suspect]
     Indication: DRUG USE FOR UNKNOWN INDICATION
     Route: 065
  2. ZAPONEX [Suspect]
     Indication: DRUG USE FOR UNKNOWN INDICATION
     Route: 048
  3. THYROXINE [Suspect]
     Indication: DRUG USE FOR UNKNOWN INDICATION
     Route: 065
  4. VALPROATE SODIUM [Suspect]
     Indication: DRUG USE FOR UNKNOWN INDICATION
     Route: 065
  5. RANITIDINE [Suspect]
     Indication: DRUG USE FOR UNKNOWN INDICATION
     Route: 065
  6. HYDROCORTISONE [Suspect]
     Indication: DRUG USE FOR UNKNOWN INDICATION
     Route: 065
  7. CIPROFLOXACIN [Suspect]
     Indication: DRUG USE FOR UNKNOWN INDICATION
     Route: 065
  8. FLUCONAZOLE [Suspect]
     Indication: DRUG USE FOR UNKNOWN INDICATION
     Route: 065
  9. ACETAMINOPHEN [Suspect]
     Indication: DRUG USE FOR UNKNOWN INDICATION
     Route: 065
  10. AMISULPRIDE [Concomitant]
     Route: 065
  11. LITHIUM [Concomitant]
     Route: 065
  12. LACTULOSE [Concomitant]
     Route: 065
  13. ENOXAPARIN SODIUM [Concomitant]
     Route: 065
  14. PROPOFOL [Concomitant]
     Route: 065
  15. MIDAZOLAM HCL [Concomitant]
     Route: 065
  16. NORADRENALINE [Concomitant]
     Route: 065
  17. POTASSIUM [Concomitant]
     Route: 065
  18. INSULIN [Concomitant]
     Route: 065
  19. HEPARIN [Concomitant]
     Route: 065

REACTIONS (1)
  - LOSS OF CONSCIOUSNESS [None]
